FAERS Safety Report 6756609-3 (Version None)
Quarter: 2010Q2

REPORT INFORMATION
  Report Type: 
  Country: None (occurrence: None)
  Receive Date: 20100604
  Receipt Date: 20100527
  Transmission Date: 20101027
  Serious: Yes (Other)
  Sender: FDA-Public Use
  Company Number: TW-ALLERGAN-1007109US

PATIENT
  Age: 50 Year
  Sex: Female

DRUGS (8)
  1. PREDNISOLONE ACETATE [Suspect]
     Indication: ENDOPHTHALMITIS
     Route: 047
  2. ATROPINE SULFATE [Suspect]
     Indication: ENDOPHTHALMITIS
     Route: 047
  3. BRIMONIDINE TARTRATE [Suspect]
     Indication: ENDOPHTHALMITIS
     Route: 047
  4. TIMOLOL MALEATE [Suspect]
     Indication: ENDOPHTHALMITIS
     Route: 047
  5. DORZOLAMIDE [Suspect]
     Indication: ENDOPHTHALMITIS
     Route: 047
  6. VANCOMYCIN [Concomitant]
     Indication: ENDOPHTHALMITIS
     Route: 047
  7. CEFTAZIDIME [Concomitant]
     Indication: ENDOPHTHALMITIS
     Route: 031
  8. CEFTRIAXONE [Concomitant]
     Route: 040

REACTIONS (3)
  - EYE INFLAMMATION [None]
  - SCLERAL DISORDER [None]
  - VISUAL ACUITY REDUCED [None]
